FAERS Safety Report 7482602-1 (Version None)
Quarter: 2011Q2

REPORT INFORMATION
  Report Type: 
  Country: None (occurrence: None)
  Receive Date: 20110516
  Receipt Date: 20110427
  Transmission Date: 20111010
  Serious: No
  Sender: FDA-Public Use
  Company Number: US-B.I. PHARMACEUTICALS,INC./RIDGEFIELD-2010-BP-14866BP

PATIENT
  Sex: Male

DRUGS (7)
  1. PRADAXA [Suspect]
     Indication: ATRIAL FIBRILLATION
     Dosage: 300 MG
     Route: 048
     Dates: start: 20110104
  2. NIASPAN [Suspect]
     Indication: BLOOD CHOLESTEROL INCREASED
     Dates: start: 20101203, end: 20101203
  3. DIOVAN [Concomitant]
  4. LASIX [Concomitant]
  5. PRAVASTATIN [Concomitant]
  6. CIALIS [Concomitant]
  7. AMBIEN [Concomitant]

REACTIONS (2)
  - NAUSEA [None]
  - URINE COLOUR ABNORMAL [None]
